FAERS Safety Report 5371088-9 (Version None)
Quarter: 2007Q2

REPORT INFORMATION
  Report Type: 
  Country: None (occurrence: None)
  Receive Date: 20070615
  Receipt Date: 20070413
  Transmission Date: 20071010
  Serious: Yes (Other)
  Sender: FDA-Public Use
  Company Number: 200711875US

PATIENT
  Age: 56 Year
  Sex: Female

DRUGS (8)
  1. LANTUS [Suspect]
     Indication: DIABETES MELLITUS
  2. LANTUS [Suspect]
     Indication: DIABETES MELLITUS
     Dates: start: 20070313
  3. GLIPIZIDE [Concomitant]
  4. REPAGLINIDE (PRANDIN 01393601/) [Concomitant]
  5. FUROSEMIDE (LASIX/00032601/) [Concomitant]
  6. ZETIA [Concomitant]
  7. LEVOTHYROXINE SODIUM [Concomitant]
  8. SIMVASTATIN (SIMVASTIN) [Concomitant]

REACTIONS (2)
  - ANGIOEDEMA [None]
  - URTICARIA [None]
